FAERS Safety Report 6157973-9 (Version None)
Quarter: 2009Q2

REPORT INFORMATION
  Report Type: 
  Country: None (occurrence: None)
  Receive Date: 20090417
  Receipt Date: 20090409
  Transmission Date: 20091009
  Serious: Yes (Hospitalization, Other)
  Sender: FDA-Public Use
  Company Number: US-ELI_LILLY_AND_COMPANY-US200904002134

PATIENT
  Sex: Male
  Weight: 95.692 kg

DRUGS (11)
  1. BYETTA [Suspect]
     Indication: TYPE 2 DIABETES MELLITUS
     Dosage: 5 UG, DAILY (1/D)
     Route: 058
     Dates: start: 20080301, end: 20080501
  2. BYETTA [Suspect]
     Dosage: 5 UG, DAILY (1/D)
     Route: 058
     Dates: start: 20090402, end: 20090405
  3. BYETTA [Suspect]
     Dosage: 5 UG, 2/D
     Route: 058
     Dates: start: 20090406
  4. GLUCOPHAGE [Concomitant]
     Indication: TYPE 2 DIABETES MELLITUS
     Dosage: 1000 MG, DAILY (1/D)
     Route: 048
     Dates: start: 20050101
  5. ACTOS [Concomitant]
     Indication: TYPE 2 DIABETES MELLITUS
     Dosage: 30 MG, DAILY (1/D)
     Route: 048
  6. JANUVIA [Concomitant]
     Indication: TYPE 2 DIABETES MELLITUS
     Dosage: 100 MG, DAILY (1/D)
     Route: 048
     Dates: start: 20070101
  7. SYNTHROID [Concomitant]
     Indication: THYROID DISORDER
     Dosage: 0.075 MG, DAILY (1/D)
     Route: 048
  8. TRICOR [Concomitant]
     Indication: BLOOD TRIGLYCERIDES INCREASED
     Dosage: UNK, UNKNOWN
     Dates: start: 20020101, end: 20090310
  9. ALLOPURINOL [Concomitant]
     Indication: NEPHROLITHIASIS
     Dosage: 500 MG, DAILY (1/D)
     Route: 048
     Dates: end: 20090401
  10. ALLOPURINOL [Concomitant]
     Dosage: 400 MG, DAILY (1/D)
     Route: 048
     Dates: start: 20090401
  11. OTHER LIPID MODIFYING AGENTS [Concomitant]
     Indication: BLOOD TRIGLYCERIDES INCREASED
     Dosage: 135 MG, DAILY (1/D)
     Route: 048
     Dates: start: 20090311

REACTIONS (7)
  - ABDOMINAL PAIN UPPER [None]
  - DIVERTICULAR PERFORATION [None]
  - GASTROINTESTINAL DISORDER [None]
  - INSOMNIA [None]
  - PAIN [None]
  - RASH PUSTULAR [None]
  - STAPHYLOCOCCAL INFECTION [None]
